FAERS Safety Report 17042453 (Version 1)
Quarter: 2019Q4

REPORT INFORMATION
  Report Type: Spontaneous
  Country: DE (occurrence: DE)
  Receive Date: 20191118
  Receipt Date: 20191118
  Transmission Date: 20200122
  Serious: Yes (Life-Threatening, Hospitalization, Congenital Anomaly, Other)
  Sender: FDA-Public Use
  Company Number: DE-MYLANLABS-2014S1007896

PATIENT
  Sex: Male
  Weight: 3.1 kg

DRUGS (3)
  1. L-THYROXIN                         /00068002/ [Concomitant]
     Active Substance: LEVOTHYROXINE SODIUM
     Indication: FOETAL EXPOSURE TIMING UNSPECIFIED
     Dosage: 500 MG,BID
     Route: 064
  2. CITALOPRAM [Suspect]
     Active Substance: CITALOPRAM HYDROBROMIDE
     Indication: PRODUCT USED FOR UNKNOWN INDICATION
     Dosage: 40 MG,QD
     Route: 064
  3. KEPPRA [Suspect]
     Active Substance: LEVETIRACETAM
     Indication: FOETAL EXPOSURE TIMING UNSPECIFIED
     Dosage: 500 MG,BID
     Route: 064

REACTIONS (9)
  - Pulmonary valve stenosis [Unknown]
  - Mitral valve incompetence [Unknown]
  - Foetal exposure during pregnancy [Recovered/Resolved]
  - Persistent foetal circulation [Recovered/Resolved]
  - Poor sucking reflex [Unknown]
  - Hypokalaemia [Unknown]
  - Atrial septal defect [Unknown]
  - Hydrocele [Unknown]
  - Infection [Unknown]

NARRATIVE: CASE EVENT DATE: 201403
